FAERS Safety Report 25855361 (Version 2)
Quarter: 2025Q4

REPORT INFORMATION
  Report Type: Spontaneous
  Country: US (occurrence: US)
  Receive Date: 20250927
  Receipt Date: 20251106
  Transmission Date: 20260117
  Serious: No
  Sender: SANOFI AVENTIS
  Company Number: US-SA-2025SA288487

PATIENT
  Age: 66 Year
  Sex: Female

DRUGS (4)
  1. DUPIXENT [Suspect]
     Active Substance: DUPILUMAB
     Indication: Dermatitis atopic
     Dosage: 600 MG, 1X
     Route: 058
     Dates: start: 202509, end: 202509
  2. DUPIXENT [Suspect]
     Active Substance: DUPILUMAB
     Dosage: 300 MG, QOW
     Route: 058
     Dates: start: 202509
  3. DUPIXENT [Suspect]
     Active Substance: DUPILUMAB
     Dosage: 600.000MG 1X
     Dates: start: 202507, end: 202507
  4. DUPIXENT [Suspect]
     Active Substance: DUPILUMAB
     Dosage: 300.000MG QOW

REACTIONS (5)
  - Rash [Unknown]
  - Dry skin [Unknown]
  - Product dose omission issue [Unknown]
  - Injection site dryness [Unknown]
  - Injection site rash [Unknown]

NARRATIVE: CASE EVENT DATE: 20250901
